FAERS Safety Report 17900220 (Version 1)
Quarter: 2020Q2

REPORT INFORMATION
  Report Type: Spontaneous
  Country: US (occurrence: US)
  Receive Date: 20200615
  Receipt Date: 20200615
  Transmission Date: 20200714
  Serious: Yes (Hospitalization)
  Sender: FDA-Public Use
  Company Number: None

PATIENT
  Age: 23 Year
  Sex: Female

DRUGS (1)
  1. STELARA [Suspect]
     Active Substance: USTEKINUMAB
     Indication: CROHN^S DISEASE
     Dosage: ?          OTHER FREQUENCY:Q8WEEKS ;?
     Route: 058
     Dates: start: 20200218

REACTIONS (4)
  - Condition aggravated [None]
  - Diarrhoea [None]
  - Therapy interrupted [None]
  - Insurance issue [None]

NARRATIVE: CASE EVENT DATE: 20200515
